FAERS Safety Report 8727056 (Version 2)
Quarter: 2012Q4

REPORT INFORMATION
  Report Type: 
  Country: US (occurrence: US)
  Receive Date: 20120816
  Receipt Date: 20120904
  Transmission Date: 20130627
  Serious: Yes (Other)
  Sender: FDA-Public Use
  Company Number: US-PFIZER INC-2012199672

PATIENT
  Sex: Male

DRUGS (2)
  1. CHANTIX [Suspect]
  2. ZOLOFT [Concomitant]
     Dosage: 100 mg, UNK

REACTIONS (3)
  - Depression [Unknown]
  - Visual impairment [Unknown]
  - Blood pressure fluctuation [Unknown]
